FAERS Safety Report 15108982 (Version 2)
Quarter: 2018Q4

REPORT INFORMATION
  Report Type: Report from Study
  Country: JP (occurrence: JP)
  Receive Date: 20180705
  Receipt Date: 20181005
  Transmission Date: 20190204
  Serious: Yes (Other)
  Sender: FDA-Public Use
  Company Number: JP-ROCHE-2149328

PATIENT

DRUGS (2)
  1. MIZORIBINE [Concomitant]
     Active Substance: MIZORIBINE
  2. RITUXIMAB. [Suspect]
     Active Substance: RITUXIMAB
     Indication: NEPHROTIC SYNDROME
     Route: 041

REACTIONS (3)
  - Electrocardiogram abnormal [Recovered/Resolved]
  - Immunoglobulins decreased [Not Recovered/Not Resolved]
  - Agranulocytosis [Recovered/Resolved]
